FAERS Safety Report 7494408-8 (Version None)
Quarter: 2011Q2

REPORT INFORMATION
  Report Type: 
  Country: None (occurrence: None)
  Receive Date: 20110520
  Receipt Date: 20110516
  Transmission Date: 20111010
  Serious: Yes (Hospitalization)
  Sender: FDA-Public Use
  Company Number: US-B.I. PHARMACEUTICALS,INC./RIDGEFIELD-2011-BP-13227BP

PATIENT
  Sex: Male

DRUGS (9)
  1. PRADAXA [Suspect]
     Indication: ATRIAL FIBRILLATION
     Dosage: 150 MG
     Route: 048
     Dates: start: 20110129, end: 20110513
  2. JANUMET [Concomitant]
     Indication: DIABETES MELLITUS
  3. ULTRACET [Concomitant]
     Indication: ARTHRALGIA
  4. REQUIP [Concomitant]
     Indication: RESTLESS LEGS SYNDROME
  5. ACIPHEX [Concomitant]
     Indication: GASTROOESOPHAGEAL REFLUX DISEASE
  6. FOLGARD [Concomitant]
     Indication: SUPPLEMENTATION THERAPY
  7. M.V.I. [Concomitant]
     Indication: SUPPLEMENTATION THERAPY
  8. LOVAZA [Concomitant]
     Indication: BLOOD CHOLESTEROL INCREASED
  9. TOPROL-XL [Concomitant]
     Indication: BLOOD PRESSURE

REACTIONS (1)
  - RASH [None]
